FAERS Safety Report 11231027 (Version 1)
Quarter: 2015Q2

REPORT INFORMATION
  Report Type: Spontaneous
  Country: GB (occurrence: None)
  Receive Date: 20150629
  Receipt Date: 20150629
  Transmission Date: 20150821
  Serious: Yes (Hospitalization, Other)
  Sender: FDA-Public Use
  Company Number: 2015RR-99127

PATIENT
  Age: 23 Year
  Sex: Female
  Weight: 71.7 kg

DRUGS (12)
  1. HALOPERIDOL. [Concomitant]
     Active Substance: HALOPERIDOL
  2. PARACETAMOL [Concomitant]
     Active Substance: ACETAMINOPHEN
  3. DIAZEPAM. [Concomitant]
     Active Substance: DIAZEPAM
  4. FLUOXETINE (FLUOXETINE) UNKNOWN [Suspect]
     Active Substance: FLUOXETINE HYDROCHLORIDE
     Indication: PRODUCT USED FOR UNKNOWN INDICATION
  5. DIFFERIN [Concomitant]
     Active Substance: ADAPALENE
  6. LAMOTRIGINE (LAMOTRIGINE) UNKNOWN [Suspect]
     Active Substance: LAMOTRIGINE
     Indication: AFFECTIVE DISORDER
     Route: 048
     Dates: start: 20150530, end: 20150530
  7. CLONAZEPAM. [Concomitant]
     Active Substance: CLONAZEPAM
  8. SIMPLE LINCTUS (CITRIC ACID;CONCENTRATE ANISE WATER) [Concomitant]
  9. LEVOMEPROMAZINE (LEVOMEPROMAZINE) UNKNOWN [Suspect]
     Active Substance: LEVOMEPROMAZINE
     Indication: PRODUCT USED FOR UNKNOWN INDICATION
  10. MELATONIN (MELATONIN) [Suspect]
     Active Substance: MELATONIN
     Indication: PRODUCT USED FOR UNKNOWN INDICATION
     Dosage: AT NIGHT,
  11. CAFFEINE (CAFFEINE) UNKNOWN [Suspect]
     Active Substance: CAFFEINE
     Indication: PRODUCT USED FOR UNKNOWN INDICATION
  12. CLINDAMYCIN [Concomitant]
     Active Substance: CLINDAMYCIN\CLINDAMYCIN PHOSPHATE

REACTIONS (10)
  - Dyspnoea [None]
  - Palpitations [None]
  - Hypoaesthesia oral [None]
  - Apparent death [None]
  - Dizziness [None]
  - Malaise [None]
  - Hypoaesthesia [None]
  - Paraesthesia [None]
  - Restlessness [None]
  - Abdominal discomfort [None]

NARRATIVE: CASE EVENT DATE: 20150530
